FAERS Safety Report 23079596 (Version 1)
Quarter: 2023Q4

REPORT INFORMATION
  Report Type: Spontaneous
  Country: US (occurrence: US)
  Receive Date: 20231018
  Receipt Date: 20231018
  Transmission Date: 20240110
  Serious: Yes (Other)
  Sender: FDA-Public Use
  Company Number: US-AMGEN-USASP2023182845

PATIENT
  Age: 61 Year
  Sex: Female

DRUGS (3)
  1. RITUXIMAB [Suspect]
     Active Substance: RITUXIMAB
     Indication: Interstitial lung disease
     Dosage: UNK
     Route: 065
  2. PREDNISONE [Concomitant]
     Active Substance: PREDNISONE
     Indication: Interstitial lung disease
     Dosage: UNK
  3. AZATHIOPRINE [Concomitant]
     Active Substance: AZATHIOPRINE
     Indication: Interstitial lung disease
     Dosage: UNK

REACTIONS (10)
  - Immune thrombocytopenia [Unknown]
  - Pulmonary hypertension [Unknown]
  - Hypothyroidism [Unknown]
  - Type 1 diabetes mellitus [Unknown]
  - Autoimmune enteropathy [Unknown]
  - Interstitial lung disease [Unknown]
  - Neutropenia [Unknown]
  - Cytopenia [Unknown]
  - Off label use [Unknown]
  - Arthritis [Unknown]
